FAERS Safety Report 7587513-9 (Version None)
Quarter: 2011Q3

REPORT INFORMATION
  Report Type: 
  Country: None (occurrence: None)
  Receive Date: 20110704
  Receipt Date: 20110627
  Transmission Date: 20111222
  Serious: Yes (Hospitalization)
  Sender: FDA-Public Use
  Company Number: FR-BRISTOL-MYERS SQUIBB COMPANY-15862212

PATIENT
  Age: 86 Year
  Sex: Female

DRUGS (8)
  1. NORDAZ [Suspect]
  2. LEVOTHYROXINE SODIUM [Concomitant]
  3. IRBESARTAN [Suspect]
     Route: 048
  4. ASPIRIN [Suspect]
  5. CIPRALAN [Suspect]
  6. ATORVASTATIN CALCIUM [Suspect]
     Dates: end: 20100701
  7. ESIDRIX [Concomitant]
  8. NEBIVOLOL HCL [Suspect]

REACTIONS (2)
  - TRANSAMINASES INCREASED [None]
  - RHABDOMYOLYSIS [None]
